FAERS Safety Report 8106786-7 (Version None)
Quarter: 2012Q1

REPORT INFORMATION
  Report Type: 
  Country: None (occurrence: None)
  Receive Date: 20120130
  Receipt Date: 20120116
  Transmission Date: 20120608
  Serious: Yes (Hospitalization, Other)
  Sender: FDA-Public Use
  Company Number: 2012MA000767

PATIENT
  Sex: Female
  Weight: 84.369 kg

DRUGS (21)
  1. GLIPIZIDE [Concomitant]
  2. LEXAPRO [Concomitant]
  3. HYDROCHLOROTHIAZIDE [Concomitant]
  4. DIVON [Concomitant]
  5. METFORMIN HCL [Concomitant]
  6. BISMUTH SUBSALICYLATE [Concomitant]
  7. INFLUENZA VACCINE [Concomitant]
  8. LIPITOR [Concomitant]
  9. POTASSIUM [Concomitant]
  10. KAYEXALATE [Concomitant]
  11. LASIX [Concomitant]
  12. NAPROXEN [Concomitant]
  13. PNEUMOVAX 23 [Concomitant]
  14. PREDNISONE [Concomitant]
  15. TRIAMTERENE [Concomitant]
  16. DIGOXIN [Suspect]
     Dosage: 0.25 MG
     Dates: end: 20071102
  17. HUMALOG [Concomitant]
  18. IBUPROFEN [Concomitant]
  19. SANTYL [Concomitant]
  20. COREG [Concomitant]
  21. SPIRONOLACTONE [Concomitant]

REACTIONS (46)
  - BLOOD POTASSIUM INCREASED [None]
  - LEFT ATRIAL DILATATION [None]
  - TOXICITY TO VARIOUS AGENTS [None]
  - CARDIAC FAILURE CONGESTIVE [None]
  - MUSCULOSKELETAL PAIN [None]
  - ASTHENIA [None]
  - HYPERTENSION [None]
  - CHILLS [None]
  - MYALGIA [None]
  - SINUS TACHYCARDIA [None]
  - CARDIOACTIVE DRUG LEVEL INCREASED [None]
  - ERYTHEMA [None]
  - PAIN [None]
  - ANXIETY [None]
  - TEARFULNESS [None]
  - BLOOD GLUCOSE INCREASED [None]
  - RENAL FAILURE ACUTE [None]
  - DEHYDRATION [None]
  - DYSPNOEA [None]
  - HYPOTENSION [None]
  - RIGHT ATRIAL DILATATION [None]
  - ROAD TRAFFIC ACCIDENT [None]
  - DEPRESSION [None]
  - HYPERKALAEMIA [None]
  - FATIGUE [None]
  - CORONARY ARTERY DISEASE [None]
  - HYPERLIPIDAEMIA [None]
  - COUGH [None]
  - DYSPEPSIA [None]
  - SKIN DISCOMFORT [None]
  - HEADACHE [None]
  - BLOOD SODIUM DECREASED [None]
  - WEIGHT DECREASED [None]
  - ELECTROCARDIOGRAM ST SEGMENT DEPRESSION [None]
  - SLEEP DISORDER [None]
  - HYPONATRAEMIA [None]
  - TYPE 2 DIABETES MELLITUS [None]
  - BURNS SECOND DEGREE [None]
  - ELECTROCARDIOGRAM ABNORMAL [None]
  - ELECTROCARDIOGRAM T WAVE INVERSION [None]
  - NAUSEA [None]
  - DECREASED APPETITE [None]
  - ABDOMINAL PAIN [None]
  - ORTHOPNOEA [None]
  - BREAST PAIN [None]
  - LEFT VENTRICULAR HYPERTROPHY [None]
